FAERS Safety Report 15694481 (Version 1)
Quarter: 2018Q4

REPORT INFORMATION
  Report Type: Spontaneous
  Country: US (occurrence: US)
  Receive Date: 20181206
  Receipt Date: 20181206
  Transmission Date: 20190205
  Serious: No
  Sender: FDA-Public Use
  Company Number: US-ASTRAZENECA-2018SF46548

PATIENT
  Sex: Male

DRUGS (1)
  1. IMFINZI [Suspect]
     Active Substance: DURVALUMAB
     Indication: LUNG SQUAMOUS CELL CARCINOMA STAGE III
     Route: 042

REACTIONS (2)
  - Diabetes mellitus [Unknown]
  - Radiation pneumonitis [Unknown]
